FAERS Safety Report 7164588-2 (Version None)
Quarter: 2010Q4

REPORT INFORMATION
  Report Type: 
  Country: None (occurrence: None)
  Receive Date: 20101215
  Receipt Date: 20101207
  Transmission Date: 20110411
  Serious: Yes (Hospitalization)
  Sender: FDA-Public Use
  Company Number: US-SANOFI-AVENTIS-2010SA075058

PATIENT
  Age: 62 Year
  Sex: Female
  Weight: 64 kg

DRUGS (8)
  1. PLAVIX [Suspect]
     Indication: ACUTE CORONARY SYNDROME
     Route: 048
     Dates: start: 20101026, end: 20101026
  2. PLAVIX [Suspect]
     Route: 048
     Dates: start: 20101028
  3. ISOSORBIDE DINITRATE [Concomitant]
     Dates: start: 20101025
  4. GLYCERYL TRINITRATE [Concomitant]
     Dates: start: 20101025
  5. ARIPIPRAZOLE [Concomitant]
  6. PAROXETINE HCL [Concomitant]
  7. RABEPRAZOLE SODIUM [Concomitant]
  8. ALPRAZOLAM [Concomitant]

REACTIONS (1)
  - SUICIDE ATTEMPT [None]
